FAERS Safety Report 15905429 (Version 1)
Quarter: 2019Q1

REPORT INFORMATION
  Report Type: Spontaneous
  Country: US (occurrence: US)
  Receive Date: 20190201
  Receipt Date: 20190201
  Transmission Date: 20190417
  Serious: No
  Sender: FDA-Public Use
  Company Number: None

PATIENT
  Age: 36 Year
  Sex: Female

DRUGS (5)
  1. AIMOVIG [Suspect]
     Active Substance: ERENUMAB-AOOE
     Indication: MIGRAINE PROPHYLAXIS
     Dosage: ?          QUANTITY:1 INJECTION(S);OTHER FREQUENCY:ONCE A MONTH;OTHER ROUTE:INJECTION IN STOMACH?
     Dates: start: 20181228, end: 20181228
  2. TROKENDI XR [Concomitant]
     Active Substance: TOPIRAMATE
  3. CAMBIA [Concomitant]
     Active Substance: DICLOFENAC POTASSIUM
  4. RELPAX [Concomitant]
     Active Substance: ELETRIPTAN HYDROBROMIDE
  5. MAGNESIUM [Concomitant]
     Active Substance: MAGNESIUM

REACTIONS (4)
  - Nausea [None]
  - Chills [None]
  - Pain [None]
  - Migraine [None]

NARRATIVE: CASE EVENT DATE: 20181231
